FAERS Safety Report 7249476-5 (Version None)
Quarter: 2011Q1

REPORT INFORMATION
  Report Type: 
  Country: None (occurrence: None)
  Receive Date: 20110128
  Receipt Date: 20101201
  Transmission Date: 20110831
  Serious: Yes (Hospitalization, Other)
  Sender: FDA-Public Use
  Company Number: US-BAYER-201029272NA

PATIENT
  Sex: Female
  Weight: 63.039 kg

DRUGS (9)
  1. YAZ [Suspect]
     Indication: DYSFUNCTIONAL UTERINE BLEEDING
     Dosage: UNK
     Route: 048
     Dates: start: 20090420, end: 20090628
  2. ZITHROMAX [Concomitant]
     Indication: LUNG INFECTION
     Dosage: UNK
     Dates: start: 20090620, end: 20090625
  3. PREDNISONE [Concomitant]
     Indication: INFLAMMATION
     Dosage: UNK
     Dates: start: 20090620, end: 20090625
  4. LACTULOSE [Concomitant]
     Indication: CONSTIPATION
     Dosage: UNK
     Dates: start: 20090629
  5. PRISTIQ [Concomitant]
     Indication: DEPRESSION
     Dosage: 50 MG, QD
  6. ATIVAN [Concomitant]
     Indication: ANXIETY
     Dosage: UNK UNK, QID
  7. LEXAPRO [Concomitant]
     Indication: DEPRESSION
     Dosage: UNK
     Dates: start: 20000101, end: 20090601
  8. ADIPEX [Concomitant]
     Indication: WEIGHT DECREASED
     Dosage: UNK
     Dates: start: 20070101
  9. KETOROLAC [Concomitant]
     Indication: COSTOCHONDRITIS
     Dosage: UNK
     Dates: start: 20090629

REACTIONS (3)
  - DYSPNOEA [None]
  - CHEST PAIN [None]
  - PULMONARY EMBOLISM [None]
